FAERS Safety Report 9034284 (Version 5)
Quarter: 2013Q1

REPORT INFORMATION
  Report Type: Spontaneous
  Country: US (occurrence: None)
  Receive Date: 20130115
  Receipt Date: 20130322
  Transmission Date: 20140127
  Serious: Yes (Other)
  Sender: FDA-Public Use
  Company Number: 2012-7969

PATIENT
  Age: 49 Year
  Sex: Female
  Weight: 55.5 kg

DRUGS (11)
  1. SOMATULINE DEPOT [Suspect]
     Indication: ACROMEGALY
     Dosage: 60 MG (60 MG, 1 IN 28 D)
     Route: 058
     Dates: start: 20110418, end: 20130215
  2. PREDNISONE [Suspect]
     Indication: PRODUCT USED FOR UNKNOWN INDICATION
     Route: 048
     Dates: start: 20120227
  3. CITALOPRAM (CITALOPRAM) [Concomitant]
  4. CLOTRIMAZOLE [Concomitant]
  5. PERCOCET [Concomitant]
  6. IBUPROFEN [Concomitant]
  7. LEVOTHYROXINE [Concomitant]
  8. PLAQUENIL [Concomitant]
  9. SUMATRIPTAN [Concomitant]
  10. TRAMADOL [Concomitant]
  11. WARFARIN [Concomitant]

REACTIONS (6)
  - Fall [None]
  - Fractured sacrum [None]
  - Injection site abscess [None]
  - Middle insomnia [None]
  - Swelling [None]
  - Blood cortisol decreased [None]
